FAERS Safety Report 18233383 (Version 2)
Quarter: 2020Q3

REPORT INFORMATION
  Report Type: Spontaneous
  Country: US (occurrence: US)
  Receive Date: 20200904
  Receipt Date: 20200918
  Transmission Date: 20201103
  Serious: No
  Sender: FDA-Public Use
  Company Number: US-MILLICENT HOLDINGS LTD.-MILL20200066

PATIENT
  Age: 60 Year
  Sex: Female

DRUGS (3)
  1. FEMRING [Suspect]
     Active Substance: ESTRADIOL ACETATE
     Indication: MENOPAUSE
     Dosage: 0.10 MG/DAY
     Route: 067
     Dates: start: 20200818
  2. FEMRING [Suspect]
     Active Substance: ESTRADIOL ACETATE
     Indication: HOT FLUSH
     Dosage: 0.10 MG/DAY
     Route: 067
     Dates: start: 202002
  3. WELLBUTRIN [Concomitant]
     Active Substance: BUPROPION HYDROCHLORIDE
     Indication: DEPRESSION
     Dosage: UNKNOWN
     Route: 065

REACTIONS (6)
  - Hot flush [Not Recovered/Not Resolved]
  - Product colour issue [Unknown]
  - Device expulsion [Unknown]
  - Malaise [Not Recovered/Not Resolved]
  - Product dose omission issue [None]
  - Product use issue [Unknown]

NARRATIVE: CASE EVENT DATE: 2020
